FAERS Safety Report 5835819-3 (Version None)
Quarter: 2008Q3

REPORT INFORMATION
  Report Type: 
  Country: None (occurrence: None)
  Receive Date: 20080806
  Receipt Date: 20080801
  Transmission Date: 20090109
  Serious: Yes (Hospitalization)
  Sender: FDA-Public Use
  Company Number: GB-BOEHRINGER INGELHEIM GMBH, GERMANY-2008-UK-01428UK

PATIENT
  Age: 65 Year
  Sex: Female

DRUGS (9)
  1. MICARDIS [Suspect]
     Indication: HYPERTENSION
     Dates: start: 20080402
  2. SERETIDE ACUHALER [Concomitant]
  3. ALBUTEROL [Concomitant]
  4. LEVOTHYROXINE SODIUM [Concomitant]
  5. ASPIRIN [Concomitant]
  6. BENDROFLUAZIDE [Concomitant]
  7. AMLODIPINE [Concomitant]
  8. METFORMIN HCL [Concomitant]
  9. FLIXONASE NASAL CAPSULES [Concomitant]

REACTIONS (1)
  - RENAL DISORDER [None]
